FAERS Safety Report 19235923 (Version 2)
Quarter: 2021Q2

REPORT INFORMATION
  Report Type: Report from Study
  Country: None (occurrence: BE)
  Receive Date: 20210510
  Receipt Date: 20210616
  Transmission Date: 20210717
  Serious: Yes (Hospitalization)
  Sender: FDA-Public Use
  Company Number: BE-ABBVIE-21K-013-3896813-00

PATIENT
  Sex: Female
  Weight: 69 kg

DRUGS (11)
  1. DUODOPA [Suspect]
     Active Substance: CARBIDOPA\LEVODOPA
     Dosage: MD 5.7 ML; CD 3.7 ML/HR DURING 16 HOURS; ED 2.3 ML
     Route: 050
     Dates: start: 20201201, end: 20210204
  2. DUODOPA [Suspect]
     Active Substance: CARBIDOPA\LEVODOPA
     Dosage: MD 5.5 ML; CD 3.8 ML/HR DURING 16 HOURS; ED 2.3 ML
     Route: 050
     Dates: start: 20210406
  3. DUODOPA [Suspect]
     Active Substance: CARBIDOPA\LEVODOPA
     Indication: PARKINSON^S DISEASE
     Route: 050
     Dates: start: 20110426, end: 20201201
  4. PRAMIPEXOLE. [Concomitant]
     Active Substance: PRAMIPEXOLE
     Dosage: ONE TABLET
  5. MIRAPEXIN [Concomitant]
     Active Substance: PRAMIPEXOLE
     Indication: PRODUCT USED FOR UNKNOWN INDICATION
     Dosage: HALF A TABLET
  6. SINEMET [Concomitant]
     Active Substance: CARBIDOPA\LEVODOPA
     Indication: PRODUCT USED FOR UNKNOWN INDICATION
     Dosage: HALF A TABLET
  7. PRAMIPEXOLE. [Concomitant]
     Active Substance: PRAMIPEXOLE
     Indication: PRODUCT USED FOR UNKNOWN INDICATION
     Dosage: AT 22.00 HOURS
  8. SINEMET [Concomitant]
     Active Substance: CARBIDOPA\LEVODOPA
     Dosage: HALF A TABLET?AT 7.00 AND 22.00 HOURS
  9. DUODOPA [Suspect]
     Active Substance: CARBIDOPA\LEVODOPA
     Dosage: MD 5.7 ML; CD 3.8 ML/HR DURING 24 HOURS; ED 2.3 ML; NCD 2.3 ML/HR
     Route: 050
     Dates: start: 20210219, end: 20210406
  10. PRAMIPEXOLE. [Concomitant]
     Active Substance: PRAMIPEXOLE
     Indication: PRODUCT USED FOR UNKNOWN INDICATION
     Dosage: RETARD, ONE TABLET
  11. DUODOPA [Suspect]
     Active Substance: CARBIDOPA\LEVODOPA
     Dosage: MD 5.7 ML; CD 3.7 ML/HR DURING 24 HOURS; ED 2.3 ML; NCD 2.0 ML/HR
     Route: 050
     Dates: start: 20210204, end: 20210219

REACTIONS (1)
  - Hip fracture [Recovered/Resolved]
